FAERS Safety Report 8824824 (Version 2)
Quarter: 2012Q4

REPORT INFORMATION
  Report Type: Report from Study
  Country: CA (occurrence: CA)
  Receive Date: 20121004
  Receipt Date: 20121017
  Transmission Date: 20130627
  Serious: Yes (Hospitalization)
  Sender: FDA-Public Use
  Company Number: CA-JNJFOC-20120910116

PATIENT
  Age: 44 Year
  Sex: Male
  Weight: 100.9 kg

DRUGS (4)
  1. REMICADE [Suspect]
     Indication: PSORIASIS
     Route: 042
     Dates: start: 20120807
  2. REMICADE [Suspect]
     Indication: PSORIASIS
     Dosage: at every 0, 2 and 4 weeks
     Route: 042
     Dates: start: 20120821
  3. REMICADE [Suspect]
     Indication: PSORIASIS
     Route: 042
     Dates: end: 20121003
  4. REMICADE [Suspect]
     Indication: PSORIASIS
     Route: 042
     Dates: start: 20120918

REACTIONS (7)
  - Pain [Recovering/Resolving]
  - Vomiting [Recovering/Resolving]
  - Asthenia [Recovering/Resolving]
  - Pyrexia [Recovering/Resolving]
  - Nausea [Recovering/Resolving]
  - Infusion related reaction [Recovered/Resolved]
  - Adverse event [Recovered/Resolved]
